FAERS Safety Report 4577257-X (Version None)
Quarter: 2005Q1

REPORT INFORMATION
  Report Type: 
  Country: None (occurrence: None)
  Receive Date: 20050209
  Receipt Date: 20050126
  Transmission Date: 20050727
  Serious: Yes (Death, Hospitalization)
  Sender: FDA-Public Use
  Company Number: 2004AL000835

PATIENT
  Age: 55 Year
  Sex: Male

DRUGS (4)
  1. PHENOBARBITAL TABLETS USP, 30 MG (PUREPAC) [Suspect]
     Dosage: PO
     Route: 048
  2. PHENOBARBITAL ELIXIR USP (ALPHARMA) [Suspect]
     Dosage: PO
     Route: 048
  3. BENZODIAZEPINE [Suspect]
     Dosage: PO
     Route: 048
  4. OPIOID [Suspect]
     Dosage: PO
     Route: 048

REACTIONS (10)
  - BLOOD PH DECREASED [None]
  - BLOOD PRESSURE DECREASED [None]
  - CEREBRAL INFARCTION [None]
  - COMA [None]
  - COMPLETED SUICIDE [None]
  - MULTIPLE DRUG OVERDOSE [None]
  - MYOCARDIAL INFARCTION [None]
  - PCO2 INCREASED [None]
  - PO2 DECREASED [None]
  - UNRESPONSIVE TO PAIN STIMULI [None]
